FAERS Safety Report 12884572 (Version 1)
Quarter: 2016Q4

REPORT INFORMATION
  Report Type: Spontaneous
  Country: US (occurrence: US)
  Receive Date: 20161025
  Receipt Date: 20161025
  Transmission Date: 20170207
  Serious: Yes (Life-Threatening, Hospitalization)
  Sender: FDA-Public Use
  Company Number: None

PATIENT
  Age: 60 Year
  Sex: Female
  Weight: 147.5 kg

DRUGS (16)
  1. FENOFIBRATE. [Concomitant]
     Active Substance: FENOFIBRATE
  2. ALBUTEROL. [Concomitant]
     Active Substance: ALBUTEROL
  3. ASPIRIN. [Concomitant]
     Active Substance: ASPIRIN
  4. MERCAPTOPURINE. [Concomitant]
     Active Substance: MERCAPTOPURINE
  5. ASACOL [Concomitant]
     Active Substance: MESALAMINE
  6. GABAPENTIN. [Concomitant]
     Active Substance: GABAPENTIN
  7. NUCYNTA [Suspect]
     Active Substance: TAPENTADOL HYDROCHLORIDE
     Indication: BACK PAIN
     Dosage: ?          OTHER FREQUENCY:BID PRN;?
     Route: 048
     Dates: start: 20161022, end: 20161022
  8. IBUPROFEN. [Concomitant]
     Active Substance: IBUPROFEN
  9. LOMOTIL [Concomitant]
     Active Substance: ATROPINE SULFATE\DIPHENOXYLATE HYDROCHLORIDE
  10. FLUOXETINE [Concomitant]
     Active Substance: FLUOXETINE HYDROCHLORIDE
  11. GLUCOSAMINE/CHRONDROTIN/BIOFLAVONOIDS/MANGANESE [Concomitant]
  12. NOVOLOG [Concomitant]
     Active Substance: INSULIN ASPART
  13. LANTUS [Concomitant]
     Active Substance: INSULIN GLARGINE
  14. AMLODIPINE [Concomitant]
     Active Substance: AMLODIPINE BESYLATE
  15. VALSARTAN. [Concomitant]
     Active Substance: VALSARTAN
  16. OMEPRAZOLE. [Concomitant]
     Active Substance: OMEPRAZOLE

REACTIONS (6)
  - Hypotension [None]
  - Somnolence [None]
  - Oxygen saturation decreased [None]
  - Hyperglycaemia [None]
  - Dyspnoea [None]
  - Renal injury [None]

NARRATIVE: CASE EVENT DATE: 20161023
